FAERS Safety Report 10979510 (Version 1)
Quarter: 2015Q2

REPORT INFORMATION
  Report Type: Spontaneous
  Country: IT (occurrence: IT)
  Receive Date: 20150402
  Receipt Date: 20150402
  Transmission Date: 20150821
  Serious: Yes (Hospitalization, Other)
  Sender: FDA-Public Use
  Company Number: IT-BAYER-2015-084362

PATIENT
  Age: 75 Year
  Sex: Female

DRUGS (10)
  1. ACETYLSALICYLIC ACID (} 100 MG) [Suspect]
     Active Substance: ASPIRIN
     Dosage: 300 MG/DAY
  2. SALBUTAMOL [Suspect]
     Active Substance: ALBUTEROL
     Dosage: 15 MG, UNK
     Route: 055
  3. AMILORIDE W/HYDROCHLOROTHIAZIDE [Concomitant]
     Active Substance: AMLODIPINE\HYDROCHLOROTHIAZIDE\OLMESARTAN
     Dosage: 5/50 MG/D
  4. NITROGLYCERIN. [Concomitant]
     Active Substance: NITROGLYCERIN
     Route: 062
  5. BENAZEPRIL [Suspect]
     Active Substance: BENAZEPRIL\BENAZEPRIL HYDROCHLORIDE
     Dosage: 10 MG/DAY
  6. LERCANIDIPINE [Concomitant]
     Active Substance: LERCANIDIPINE
     Dosage: 10 MG/DAY
  7. ATORVASTATIN [Concomitant]
     Active Substance: ATORVASTATIN
     Dosage: 20 MG/DAY
  8. ALPRAZOLAM. [Concomitant]
     Active Substance: ALPRAZOLAM
  9. PIROXICAM. [Suspect]
     Active Substance: PIROXICAM
  10. BETAHISTINE [Concomitant]
     Active Substance: BETAHISTINE
     Dosage: 8 MG/DAY

REACTIONS (9)
  - Renal artery stenosis [None]
  - Labelled drug-drug interaction medication error [None]
  - Quadriparesis [Recovering/Resolving]
  - Atrial fibrillation [None]
  - Device malfunction [None]
  - Hyperkalaemia [Recovered/Resolved]
  - Speech disorder [None]
  - Myocardial infarction [None]
  - Dysarthria [None]
